FAERS Safety Report 4699604-0 (Version None)
Quarter: 2005Q2

REPORT INFORMATION
  Report Type: 
  Country: None (occurrence: None)
  Receive Date: 20050623
  Receipt Date: 20050613
  Transmission Date: 20051028
  Serious: Yes (Other)
  Sender: FDA-Public Use
  Company Number: 2005087401

PATIENT
  Age: 66 Year
  Sex: Male

DRUGS (10)
  1. NITROGLYCERIN [Suspect]
     Indication: CARDIAC FAILURE CONGESTIVE
     Dosage: 50 MG,TOPICAL
     Route: 061
  2. DILTIAZEM [Suspect]
     Indication: CARDIAC FAILURE CONGESTIVE
     Dosage: 120 MG, ORAL
     Route: 048
  3. FUROSEMIDE [Suspect]
     Indication: CARDIAC FAILURE CONGESTIVE
     Dosage: 240 MG, ORAL
     Route: 048
  4. AMIODARONE HCL [Suspect]
     Indication: ILL-DEFINED DISORDER
     Dosage: 50 MG, ORAL
     Route: 048
     Dates: start: 19880101, end: 19900425
  5. WARFARIN SODIUM [Suspect]
     Indication: ILL-DEFINED DISORDER
     Dosage: 2.5 MG, ORAL
     Route: 048
  6. CAPOTEN [Suspect]
     Indication: ILL-DEFINED DISORDER
     Dosage: 75 MG, ORAL
     Route: 048
     Dates: start: 19890401, end: 19900428
  7. ALLOPURINOL [Suspect]
     Indication: GOUT
     Dosage: 300 MG, ORAL
     Route: 048
  8. ISOSORBIDE DINITRATE [Suspect]
     Indication: CARDIAC FAILURE CONGESTIVE
     Dosage: 60 MG, SUBLINGUIAL
     Route: 060
  9. DIGOXIN [Suspect]
     Indication: CARDIAC FAILURE CONGESTIVE
     Dosage: 125 MCG,ORAL
     Route: 048
  10. POTASSIUM CHLORIDE [Suspect]
     Indication: CARDIAC FAILURE CONGESTIVE
     Dosage: 240 MG, ORAL
     Route: 048

REACTIONS (2)
  - HYPERTHYROIDISM [None]
  - SKIN DISCOLOURATION [None]
